FAERS Safety Report 7976656-3 (Version None)
Quarter: 2011Q4

REPORT INFORMATION
  Report Type: 
  Country: None (occurrence: None)
  Receive Date: 20111213
  Receipt Date: 20111031
  Transmission Date: 20120403
  Serious: No
  Sender: FDA-Public Use
  Company Number: US-AMGEN-USASP2011056605

PATIENT
  Age: 37 Year
  Sex: Male

DRUGS (2)
  1. ENBREL [Suspect]
     Indication: ARTHRALGIA
  2. ENBREL [Suspect]
     Indication: PSORIASIS
     Dosage: 50 MG, QWK
     Dates: start: 20100101

REACTIONS (3)
  - PSORIASIS [None]
  - ARTHRALGIA [None]
  - FATIGUE [None]
